FAERS Safety Report 10275543 (Version 1)
Quarter: 2014Q2

REPORT INFORMATION
  Report Type: Spontaneous
  Country: US (occurrence: None)
  Receive Date: 20140630
  Receipt Date: 20140630
  Transmission Date: 20141212
  Serious: No
  Sender: FDA-Public Use
  Company Number: None

PATIENT
  Age: 50 Year
  Sex: Female

DRUGS (1)
  1. CIPROFLOXACIN [Suspect]
     Indication: URINARY TRACT INFECTION
     Route: 048
     Dates: start: 20140525, end: 20140528

REACTIONS (10)
  - Headache [None]
  - Malaise [None]
  - Nausea [None]
  - Vomiting [None]
  - Asthenia [None]
  - Pain [None]
  - Pain [None]
  - Hypokinesia [None]
  - Chest discomfort [None]
  - Electrocardiogram T wave inversion [None]
